FAERS Safety Report 9188070 (Version 1)
Quarter: 2013Q1

REPORT INFORMATION
  Report Type: Spontaneous
  Country: GB (occurrence: GB)
  Receive Date: 20130325
  Receipt Date: 20130325
  Transmission Date: 20140127
  Serious: Yes (Other)
  Sender: FDA-Public Use
  Company Number: GB-GLAXOSMITHKLINE-B0874869A

PATIENT
  Age: 62 Year
  Sex: Male
  Weight: 106.13 kg

DRUGS (2)
  1. FLUTICASONE [Suspect]
     Indication: ASTHMA
     Dosage: 2IUAX PER DAY
     Dates: start: 20120301, end: 20130101
  2. LEVOTHYROXINE SODIUM [Concomitant]

REACTIONS (1)
  - Dysgeusia [Recovering/Resolving]
